FAERS Safety Report 12738532 (Version 1)
Quarter: 2016Q3

REPORT INFORMATION
  Report Type: Spontaneous
  Country: US (occurrence: US)
  Receive Date: 20160912
  Receipt Date: 20160912
  Transmission Date: 20161109
  Serious: No
  Sender: FDA-Public Use
  Company Number: None

PATIENT
  Age: 63 Year
  Sex: Female

DRUGS (9)
  1. GABAPENTIN. [Concomitant]
     Active Substance: GABAPENTIN
  2. ENBREL [Suspect]
     Active Substance: ETANERCEPT
     Indication: RHEUMATOID ARTHRITIS
     Dosage: 50MG QA SQ
     Route: 058
     Dates: start: 201511
  3. ZOLPIDEM [Concomitant]
     Active Substance: ZOLPIDEM\ZOLPIDEM TARTRATE
  4. CYCLOBENZAPR [Concomitant]
  5. LEVOTHYROXIN [Concomitant]
     Active Substance: LEVOTHYROXINE
  6. SULFAXALAZIN [Concomitant]
  7. MORPHINE SUL [Concomitant]
  8. TRAMADOL HCL [Concomitant]
     Active Substance: TRAMADOL HYDROCHLORIDE
  9. RESTASIS [Concomitant]
     Active Substance: CYCLOSPORINE

REACTIONS (2)
  - Therapy cessation [None]
  - Post procedural infection [None]

NARRATIVE: CASE EVENT DATE: 201606
